FAERS Safety Report 4427938-3 (Version None)
Quarter: 2004Q3

REPORT INFORMATION
  Report Type: 
  Country: None (occurrence: None)
  Receive Date: 20040813
  Receipt Date: 20040806
  Transmission Date: 20050211
  Serious: Yes (Hospitalization)
  Sender: FDA-Public Use
  Company Number: OMPQ-PR-0408S-1073

PATIENT
  Age: 44 Year
  Sex: Male

DRUGS (5)
  1. OMNIPAQUE 180 [Suspect]
     Indication: BACK PAIN
     Dosage: SEE IMAGE
     Route: 008
     Dates: start: 20040603, end: 20040603
  2. OMNIPAQUE 180 [Suspect]
     Indication: BACK PAIN
     Dosage: SEE IMAGE
     Route: 008
     Dates: start: 20040610, end: 20040610
  3. TRIAMCINOLONE ACETONIDE (KENALOG) [Concomitant]
  4. OXYCODONE HCL [Concomitant]
  5. METHYLPREDNISOLONE (MEDROL DOSE PAK) [Concomitant]

REACTIONS (5)
  - INJECTION SITE INFLAMMATION [None]
  - INJECTION SITE PAIN [None]
  - INTERVERTEBRAL DISC PROTRUSION [None]
  - POST PROCEDURAL COMPLICATION [None]
  - PYREXIA [None]
